FAERS Safety Report 19147005 (Version 2)
Quarter: 2021Q3

REPORT INFORMATION
  Report Type: Spontaneous
  Country: CA (occurrence: CA)
  Receive Date: 20210416
  Receipt Date: 20210806
  Transmission Date: 20211014
  Serious: Yes (Death)
  Sender: FDA-Public Use
  Company Number: CA-ROCHE-2811577

PATIENT
  Sex: Female

DRUGS (7)
  1. TAPAZOLE [Concomitant]
     Active Substance: METHIMAZOLE
  2. DECADRON [Concomitant]
     Active Substance: DEXAMETHASONE
  3. BEVACIZUMAB. [Suspect]
     Active Substance: BEVACIZUMAB
     Indication: CERVIX CANCER METASTATIC
     Route: 042
  4. PANTOPRAZOLE [Concomitant]
     Active Substance: PANTOPRAZOLE
  5. DILAUDID [Concomitant]
     Active Substance: HYDROMORPHONE HYDROCHLORIDE
  6. TAXOL [Concomitant]
     Active Substance: PACLITAXEL
  7. BEVACIZUMAB. [Suspect]
     Active Substance: BEVACIZUMAB
     Dosage: THERRAPY DURATION: 106.0 DAYS
     Route: 042

REACTIONS (1)
  - Death [Fatal]
